FAERS Safety Report 6909393-4 (Version None)
Quarter: 2010Q3

REPORT INFORMATION
  Report Type: 
  Country: None (occurrence: None)
  Receive Date: 20100805
  Receipt Date: 20100731
  Transmission Date: 20110219
  Serious: Yes (Disabling, Other)
  Sender: FDA-Public Use
  Company Number: MX-SANOFI-AVENTIS-2010SA045288

PATIENT
  Age: 64 Year
  Sex: Female
  Weight: 74 kg

DRUGS (3)
  1. LANTUS [Suspect]
     Indication: DIABETES MELLITUS
     Dosage: 26-28IU
     Route: 058
     Dates: start: 20040101, end: 20100501
  2. LANTUS [Suspect]
     Route: 058
     Dates: start: 20100501, end: 20100601
  3. LANTUS [Suspect]
     Route: 058
     Dates: start: 20100601

REACTIONS (9)
  - ANXIETY [None]
  - DYSURIA [None]
  - GAIT DISTURBANCE [None]
  - HYPERGLYCAEMIA [None]
  - JOINT INJURY [None]
  - NERVOUSNESS [None]
  - OEDEMA [None]
  - PRODUCTIVE COUGH [None]
  - WEIGHT INCREASED [None]
